FAERS Safety Report 6436346-5 (Version None)
Quarter: 2009Q4

REPORT INFORMATION
  Report Type: 
  Country: None (occurrence: None)
  Receive Date: 20091110
  Receipt Date: 20091110
  Transmission Date: 20100525
  Serious: Yes (Other)
  Sender: FDA-Public Use
  Company Number: None

PATIENT
  Age: 66 Year
  Sex: Male

DRUGS (4)
  1. HUMIRA [Suspect]
     Indication: PSORIASIS
     Dosage: 40MG/0.8ML SQ QOWEEK
     Route: 058
     Dates: start: 20090604, end: 20090901
  2. OLUX FOAM [Concomitant]
  3. TACLONEX OINTMENT [Concomitant]
  4. SIMVASTATIN [Concomitant]

REACTIONS (1)
  - LYMPHOMA [None]
